FAERS Safety Report 14497083 (Version 3)
Quarter: 2019Q1

REPORT INFORMATION
  Report Type: Spontaneous
  Country: FR (occurrence: FR)
  Receive Date: 20180207
  Receipt Date: 20190307
  Transmission Date: 20190417
  Serious: Yes (Death, Other)
  Sender: FDA-Public Use
  Company Number: FR-MYLANLABS-2018M1008587

PATIENT
  Age: 8 Week
  Sex: Female
  Weight: 2.75 kg

DRUGS (44)
  1. KETOPROFEN MYLAN [Suspect]
     Active Substance: KETOPROFEN
     Indication: SPINAL PAIN
     Dosage: UNK
     Route: 064
  2. FLUTICASONE. [Suspect]
     Active Substance: FLUTICASONE
     Indication: FOETAL EXPOSURE DURING PREGNANCY
     Dosage: UNK
     Route: 064
  3. MACROGOL [Suspect]
     Active Substance: POLYETHYLENE GLYCOLS
     Indication: BRONCHITIS
     Dosage: UNK
     Route: 064
     Dates: start: 20140716, end: 201409
  4. BROMAZEPAM ARROW [Suspect]
     Active Substance: BROMAZEPAM
     Indication: ANXIETY
     Dosage: ONE AND A HALF DOSAGE PER DAY
     Route: 064
  5. CARBOCISTEINE BIOGARAN [Suspect]
     Active Substance: CARBOCYSTEINE
     Indication: BRONCHITIS
     Dosage: UNK
     Route: 064
     Dates: start: 20141212, end: 20141216
  6. BI-PROFENID [Suspect]
     Active Substance: KETOPROFEN
     Indication: PRODUCT USED FOR UNKNOWN INDICATION
     Route: 064
  7. FUNGIZONE [Concomitant]
     Active Substance: AMPHOTERICIN B
     Indication: FUNGAL INFECTION
     Dosage: 0.5 ML, QD FOR 15 DAYS
     Route: 065
     Dates: start: 20150126
  8. PROFENID [Concomitant]
     Active Substance: KETOPROFEN
     Dosage: 200 MILLIGRAM, QD
     Dates: start: 201401, end: 201404
  9. ACETYLCYSTEINE BIOGARAN [Concomitant]
     Active Substance: ACETYLCYSTEINE
     Indication: BRONCHITIS
  10. AMOXICILLINE ALMUS [Suspect]
     Active Substance: AMOXICILLIN
     Dosage: UNK
     Route: 064
     Dates: start: 201412
  11. VOGALENE [Suspect]
     Active Substance: METOPIMAZINE
     Indication: NAUSEA
     Dosage: UNK
     Route: 064
     Dates: start: 20140920, end: 201709
  12. UVESTEROL D [Suspect]
     Active Substance: ERGOCALCIFEROL
     Indication: PROPHYLAXIS
     Dosage: 1500 U/L UNK
     Route: 064
  13. PIVALONE                           /00803802/ [Suspect]
     Active Substance: TIXOCORTOL PIVALATE
     Indication: RHINITIS
     Dosage: UNK
     Route: 064
     Dates: start: 20141212
  14. BROMAZEPAM [Concomitant]
     Active Substance: BROMAZEPAM
     Indication: ANXIETY
     Dosage: UNK
     Route: 064
  15. PIVALONE                           /00803802/ [Concomitant]
     Active Substance: TIXOCORTOL PIVALATE
     Indication: RHINITIS
     Dosage: UNK
     Route: 064
  16. CODEINE PHOSPHATE HYDRATE [Suspect]
     Active Substance: CODEINE PHOSPHATE
     Indication: SPINAL PAIN
     Dosage: UNK
     Route: 064
     Dates: start: 20140403, end: 20150104
  17. NECYRANE [Suspect]
     Active Substance: RITIOMETAN
     Indication: NASOPHARYNGITIS
     Dosage: UNK
     Route: 064
     Dates: start: 20140825
  18. IMODIUM [Suspect]
     Active Substance: LOPERAMIDE HYDROCHLORIDE
     Indication: DIARRHOEA
     Dosage: UNK
     Route: 064
     Dates: start: 20141212
  19. PARACETAMOL ARROW [Concomitant]
     Active Substance: ACETAMINOPHEN
     Indication: PRODUCT USED FOR UNKNOWN INDICATION
     Dosage: UNK
     Dates: start: 201402
  20. SERETIDE [Concomitant]
     Active Substance: FLUTICASONE PROPIONATE\SALMETEROL XINAFOATE
     Indication: NASOPHARYNGITIS
     Dosage: UNK
     Dates: start: 201408
  21. VOGALENE [Concomitant]
     Active Substance: METOPIMAZINE
     Dosage: UNK
     Route: 064
     Dates: start: 201409
  22. AMOXICILLINE                       /00249603/ [Concomitant]
     Active Substance: AMOXICILLIN SODIUM
     Indication: ASTHMA
     Route: 064
  23. CARBOCISTEINE [Concomitant]
     Active Substance: CARBOCYSTEINE
     Indication: BRONCHITIS
     Dosage: UNK
     Route: 064
     Dates: start: 20141212, end: 20141216
  24. SPASFON LYOC [Suspect]
     Active Substance: PHLOROGLUCINOL
     Indication: DYSPEPSIA
     Dosage: UNK
     Route: 064
     Dates: start: 201406, end: 201407
  25. ANAFRANIL [Concomitant]
     Active Substance: CLOMIPRAMINE HYDROCHLORIDE
     Indication: DEPRESSION
     Dosage: UNK, QD
     Route: 064
  26. IMODIUM [Concomitant]
     Active Substance: LOPERAMIDE HYDROCHLORIDE
     Dosage: UNK
     Dates: start: 201412, end: 201412
  27. KLIPAL CODEINE [Concomitant]
     Active Substance: ACETAMINOPHEN\CODEINE PHOSPHATE
     Indication: SPINAL PAIN
     Dosage: UNK
     Route: 064
     Dates: start: 20140203, end: 20150104
  28. AMOXICILLINE ALMUS [Suspect]
     Active Substance: AMOXICILLIN
     Indication: ASTHMA
     Dosage: UNK
     Route: 064
     Dates: start: 20140827
  29. SERETIDE [Suspect]
     Active Substance: FLUTICASONE PROPIONATE\SALMETEROL XINAFOATE
     Indication: PRODUCT USED FOR UNKNOWN INDICATION
     Dosage: UNK
     Route: 064
     Dates: start: 20140825
  30. NECYRANE [Concomitant]
     Active Substance: RITIOMETAN
     Indication: BRONCHITIS
     Dosage: UNK
     Route: 064
     Dates: start: 20140825
  31. FLUTICASONE. [Suspect]
     Active Substance: FLUTICASONE
     Indication: ASTHMA
  32. ACETAMINOPHEN. [Suspect]
     Active Substance: ACETAMINOPHEN
     Indication: SPINAL PAIN
     Route: 064
  33. ANAFRANIL [Suspect]
     Active Substance: CLOMIPRAMINE HYDROCHLORIDE
     Indication: DEPRESSION
     Dosage: 2 DF, QD
     Route: 064
  34. KETOPROFENE ARROW [Suspect]
     Active Substance: KETOPROFEN
     Indication: PRODUCT USED FOR UNKNOWN INDICATION
     Dosage: 200 MILLIGRAM, QD
     Route: 064
     Dates: start: 201401, end: 201404
  35. SERETIDE [Concomitant]
     Active Substance: FLUTICASONE PROPIONATE\SALMETEROL XINAFOATE
     Indication: BRONCHITIS
  36. NECYRANE [Concomitant]
     Active Substance: RITIOMETAN
     Indication: NASOPHARYNGITIS
  37. KETOPROFEN. [Concomitant]
     Active Substance: KETOPROFEN
     Indication: SPINAL PAIN
     Route: 064
  38. SPASFON LYOC [Concomitant]
     Active Substance: PHLOROGLUCINOL
     Indication: DYSPEPSIA
     Dosage: UNK
     Route: 064
     Dates: start: 201406, end: 201407
  39. OMEPRAZOLE. [Suspect]
     Active Substance: OMEPRAZOLE
     Indication: GASTROOESOPHAGEAL REFLUX DISEASE
     Dosage: UNK
     Route: 064
     Dates: start: 20140920
  40. VOGALENE [Suspect]
     Active Substance: METOPIMAZINE
     Dosage: UNK
     Route: 064
     Dates: start: 201406, end: 201409
  41. ACETYLCYSTEINE BIOGARAN [Suspect]
     Active Substance: ACETYLCYSTEINE
     Indication: BRONCHITIS
     Dosage: UNK
     Route: 064
     Dates: start: 20140825
  42. VOGALENE [Concomitant]
     Active Substance: METOPIMAZINE
     Dosage: UNK
     Route: 064
     Dates: start: 201406, end: 201409
  43. PARACETAMOL [Concomitant]
     Active Substance: ACETAMINOPHEN
     Dosage: UNK
     Dates: start: 2015
  44. OMEPRAZOLE. [Concomitant]
     Active Substance: OMEPRAZOLE
     Indication: GASTROOESOPHAGEAL REFLUX DISEASE
     Dosage: UNK
     Route: 064

REACTIONS (5)
  - Foetal arrhythmia [Unknown]
  - Death [Fatal]
  - Foetal exposure during pregnancy [Recovered/Resolved]
  - Fungal infection [Unknown]
  - Premature baby [Recovered/Resolved]

NARRATIVE: CASE EVENT DATE: 20150105
